FAERS Safety Report 25713611 (Version 2)
Quarter: 2025Q4

REPORT INFORMATION
  Report Type: Report from Study
  Country: EU (occurrence: EU)
  Receive Date: 20250822
  Receipt Date: 20251001
  Transmission Date: 20260118
  Serious: Yes (Hospitalization, Other)
  Sender: AUROBINDO
  Company Number: EU-MLMSERVICE-20250811-PI601118-00218-5

PATIENT
  Age: 14 Year
  Sex: Male

DRUGS (30)
  1. METHOTREXATE [Suspect]
     Active Substance: METHOTREXATE
     Indication: B precursor type acute leukaemia
     Dosage: UNK (~RE-INDUCTION, INTRATHECAL METHOTREXATE X2 )
     Route: 037
  2. METHOTREXATE [Suspect]
     Active Substance: METHOTREXATE
     Indication: B precursor type acute leukaemia
     Dosage: 20 MG/M2 (MAINTENANCE 20 MG/M2/DOSE)
     Route: 065
  3. METHOTREXATE [Suspect]
     Active Substance: METHOTREXATE
     Dosage: 100 MG/M2 (CNS DIRECTED THERAPY: PROTOCOL M
     Route: 065
  4. METHOTREXATE [Suspect]
     Active Substance: METHOTREXATE
     Dosage: 2 DOSAGE FORM
     Route: 065
  5. METHOTREXATE [Suspect]
     Active Substance: METHOTREXATE
     Dosage: 3 DOSAGE FORM M (3 DOSES)
     Route: 065
  6. METHOTREXATE [Suspect]
     Active Substance: METHOTREXATE
     Dosage: 4 DOSAGE FORM  (4 DOSES OF HIGH DOSE METHOTREXATE 5 G/M2)
     Route: 065
  7. DOXORUBICIN [Suspect]
     Active Substance: DOXORUBICIN
     Indication: B precursor type acute leukaemia
     Dosage: 30 MILLIGRAM/SQ. METER (RE-INDUCTION, DO
     Route: 065
  8. VINCRISTINE [Suspect]
     Active Substance: VINCRISTINE
     Indication: B precursor type acute leukaemia
     Dosage: 1.5 MILLIGRAM/SQ. METER (RE-INDUCTION,
     Route: 065
  9. VINCRISTINE [Suspect]
     Active Substance: VINCRISTINE
     Indication: B precursor type acute leukaemia
  10. DEXAMETHASONE [Suspect]
     Active Substance: DEXAMETHASONE
     Indication: B precursor type acute leukaemia
     Dosage: 6 MILLIGRAM/SQ. METER, ONCE A DAY
     Route: 065
  11. DEXAMETHASONE [Suspect]
     Active Substance: DEXAMETHASONE
     Dosage: 10 MG/M2, ONCE A DAY
     Route: 065
  12. DEXAMETHASONE [Suspect]
     Active Substance: DEXAMETHASONE
     Dosage: UNK, ONCE A DAY  (MILLIGRAM PER SQUARE METRE)( )
     Route: 065
  13. DAUNORUBICIN [Suspect]
     Active Substance: DAUNORUBICIN
     Indication: B precursor type acute leukaemia
     Dosage: 30 MG/M2 (INDUCTION 1A (30 MG/M2/DOSE X 4))
     Route: 065
  14. DAUNORUBICIN [Suspect]
     Active Substance: DAUNORUBICIN
     Indication: B precursor type acute leukaemia
     Dosage: 15 MG/M2 (INDUCTION 1A (3RD
     Route: 065
  15. PEG/L-ASPARAGINASE [Suspect]
     Active Substance: PEGASPARGASE
     Indication: B precursor type acute leukaemia
     Dosage: 2500 INTERNATIONAL UNIT PER MILLILITRE
     Route: 065
  16. PEG/L-ASPARAGINASE [Suspect]
     Active Substance: PEGASPARGASE
     Indication: B precursor type acute leukaemia
     Dosage: UNK (1000 IU/ SQUARE METRE/ DOSE)
     Route: 065
  17. PEG/L-ASPARAGINASE [Suspect]
     Active Substance: PEGASPARGASE
     Dosage: 4 DOSAGE FORM (2500 IU/M2, 4 DOSES)
     Route: 065
  18. PEG/L-ASPARAGINASE [Suspect]
     Active Substance: PEGASPARGASE
     Dosage: 1 DOSAGE FORM (2500 IU/M2, 1 DOSE
     Route: 065
  19. CYCLOPHOSPHAMIDE [Suspect]
     Active Substance: CYCLOPHOSPHAMIDE
     Indication: B precursor type acute leukaemia
     Dosage: 500 MILLIGRAM/SQ. METER (RE-INDUCTION
     Route: 065
  20. CYCLOPHOSPHAMIDE [Suspect]
     Active Substance: CYCLOPHOSPHAMIDE
     Indication: B precursor type acute leukaemia
     Dosage: 100 MG/M2, ONCE A DAY
     Route: 065
  21. CYTARABINE [Suspect]
     Active Substance: CYTARABINE
     Indication: B precursor type acute leukaemia
     Dosage: 75 MILLIGRAM/SQ. METER(8 DOSES)
     Route: 065
  22. CYTARABINE [Suspect]
     Active Substance: CYTARABINE
     Indication: B precursor type acute leukaemia
     Dosage: 75 MILLIGRAM/SQ. METER(16 DOSES)
     Route: 065
  23. PREDNISONE [Suspect]
     Active Substance: PREDNISONE
     Indication: B precursor type acute leukaemia
     Dosage: 60 MG/M2, ONCE A DAY
     Route: 065
  24. PREDNISONE [Suspect]
     Active Substance: PREDNISONE
     Indication: B precursor type acute leukaemia
  25. THIOGUANINE [Suspect]
     Active Substance: THIOGUANINE
     Indication: B precursor type acute leukaemia
     Dosage: 60 MILLIGRAM/SQ. METER, ONCE A DAY
     Route: 065
  26. MERCAPTOPURINE [Suspect]
     Active Substance: MERCAPTOPURINE
     Indication: B precursor type acute leukaemia
     Dosage: 60 MG/M2, ONCE A DAY
     Route: 065
  27. MERCAPTOPURINE [Suspect]
     Active Substance: MERCAPTOPURINE
     Dosage: 25 MG/M2, ONCE A DAY
     Route: 065
  28. MERCAPTOPURINE [Suspect]
     Active Substance: MERCAPTOPURINE
     Dosage: 50 MG/M2, ONCE A DAY
     Route: 065
  29. ELEXACAFTOR\IVACAFTOR\TEZACAFTOR [Concomitant]
     Active Substance: ELEXACAFTOR\IVACAFTOR\TEZACAFTOR
     Indication: Cystic fibrosis
     Dosage: UNK (FOR 1 YEAR)
     Route: 048
  30. KALYDECO [Concomitant]
     Active Substance: IVACAFTOR
     Indication: Cystic fibrosis
     Dosage: UNK
     Route: 048

REACTIONS (14)
  - Neutropenia [Unknown]
  - Mucosal inflammation [Unknown]
  - Pneumonia viral [Unknown]
  - Steroid diabetes [Unknown]
  - Device related thrombosis [Unknown]
  - Weight decreased [Unknown]
  - Acute kidney injury [Unknown]
  - Hepatotoxicity [Unknown]
  - Vomiting [Unknown]
  - Diabetes mellitus [Unknown]
  - Pneumonia [Unknown]
  - Thrombocytopenia [Unknown]
  - Acute lymphocytic leukaemia [Unknown]
  - Pneumonia fungal [Unknown]
